FAERS Safety Report 10169493 (Version 1)
Quarter: 2014Q2

REPORT INFORMATION
  Report Type: Spontaneous
  Country: US (occurrence: US)
  Receive Date: 20140513
  Receipt Date: 20140513
  Transmission Date: 20141212
  Serious: Yes (Other)
  Sender: FDA-Public Use
  Company Number: US-JNJFOC-20140502063

PATIENT
  Age: 60 Year
  Sex: Female
  Weight: 88.45 kg

DRUGS (6)
  1. DURAGESIC [Suspect]
     Indication: PAIN
     Route: 062
  2. DURAGESIC [Suspect]
     Indication: PAIN
     Route: 062
  3. UNSPECIFIED FENTANYL PATCH [Suspect]
     Indication: PAIN
     Route: 062
  4. MYLAN FENTANYL PATCH [Suspect]
     Indication: PAIN
     Route: 062
  5. ACTAVIS FENTANYL TRANSDEMAL SYSTEM [Suspect]
     Indication: PAIN
     Route: 062
  6. MALLINCKRODT FENTANYL PATCHES [Suspect]
     Indication: PAIN
     Route: 062

REACTIONS (6)
  - Herpes zoster [Not Recovered/Not Resolved]
  - Withdrawal syndrome [Not Recovered/Not Resolved]
  - Medication error [Unknown]
  - Inappropriate schedule of drug administration [Unknown]
  - Product quality issue [Unknown]
  - Device adhesion issue [None]
